FAERS Safety Report 5005346-4 (Version None)
Quarter: 2006Q2

REPORT INFORMATION
  Report Type: 
  Country: None (occurrence: None)
  Receive Date: 20060515
  Receipt Date: 20060503
  Transmission Date: 20061013
  Serious: Yes (Hospitalization)
  Sender: FDA-Public Use
  Company Number: 2006BI000255

PATIENT
  Age: 49 Year
  Sex: Female
  Weight: 63.5036 kg

DRUGS (9)
  1. AVONEX [Suspect]
     Indication: MULTIPLE SCLEROSIS
     Dosage: 7.5 UG QW IM
     Route: 030
     Dates: start: 20050801, end: 20060331
  2. AVONEX [Suspect]
     Indication: MULTIPLE SCLEROSIS
     Dosage: 30 UG QW IM
     Route: 030
     Dates: start: 20060331
  3. OXYCONTIN [Concomitant]
  4. AMBIEN [Concomitant]
  5. TEGRETOL [Concomitant]
  6. CELEXA [Concomitant]
  7. WELLBUTRIN [Concomitant]
  8. CLIMARA [Concomitant]
  9. SENNA [Concomitant]

REACTIONS (5)
  - CANDIDIASIS [None]
  - CULTURE URINE POSITIVE [None]
  - FUNGAL SEPSIS [None]
  - NEPHROLITHIASIS [None]
  - POST PROCEDURAL COMPLICATION [None]
